FAERS Safety Report 4882063-2 (Version None)
Quarter: 2006Q1

REPORT INFORMATION
  Report Type: 
  Country: None (occurrence: None)
  Receive Date: 20060117
  Receipt Date: 20050119
  Transmission Date: 20060701
  Serious: Yes (Hospitalization)
  Sender: FDA-Public Use
  Company Number: US-MERCK-0501USA03161

PATIENT
  Age: 60 Year
  Sex: Male
  Weight: 67 kg

DRUGS (1)
  1. VIOXX [Suspect]
     Indication: OSTEOARTHRITIS
     Route: 048
     Dates: start: 19990101, end: 20030801

REACTIONS (2)
  - ANXIETY [None]
  - CEREBROVASCULAR ACCIDENT [None]
